FAERS Safety Report 8756341 (Version 2)
Quarter: 2012Q4

REPORT INFORMATION
  Report Type: 
  Country: US (occurrence: US)
  Receive Date: 20120829
  Receipt Date: 20120921
  Transmission Date: 20130627
  Serious: Yes (Death, Hospitalization, Other)
  Sender: FDA-Public Use
  Company Number: US-009507513-1208USA009752

PATIENT
  Age: 60 Year
  Sex: Male

DRUGS (8)
  1. VICTRELIS [Suspect]
     Indication: HEPATITIS C
     Dosage: 800 mg, tid
     Route: 048
     Dates: start: 20120220
  2. REBETOL [Suspect]
     Dosage: UNK
     Dates: start: 20120220
  3. PEGINTRON [Suspect]
     Dosage: UNK
     Dates: start: 20120220, end: 20120720
  4. METFORMIN [Concomitant]
  5. LANTUS [Concomitant]
  6. EXFORGE [Concomitant]
  7. IBUPROFEN [Concomitant]
  8. GABAPENTIN [Concomitant]

REACTIONS (6)
  - Choking [Fatal]
  - Myocardial infarction [Unknown]
  - Coma [Unknown]
  - Fall [Unknown]
  - Thermal burn [Unknown]
  - Hypoxia [Unknown]
